FAERS Safety Report 17164853 (Version 1)
Quarter: 2019Q4

REPORT INFORMATION
  Report Type: Spontaneous
  Country: US (occurrence: US)
  Receive Date: 20191217
  Receipt Date: 20191217
  Transmission Date: 20200122
  Serious: No
  Sender: FDA-Public Use
  Company Number: US-ROCHE-2278320

PATIENT
  Age: 76 Year
  Sex: Female
  Weight: 72.64 kg

DRUGS (2)
  1. LUCENTIS [Suspect]
     Active Substance: RANIBIZUMAB
     Indication: NEOVASCULAR AGE-RELATED MACULAR DEGENERATION
     Route: 050
     Dates: start: 20190201
  2. INSULIN [Concomitant]
     Active Substance: INSULIN NOS
     Indication: TYPE 2 DIABETES MELLITUS

REACTIONS (3)
  - Visual impairment [Recovered/Resolved]
  - Reaction to colouring [Unknown]
  - Eye pain [Unknown]

NARRATIVE: CASE EVENT DATE: 20190201
